FAERS Safety Report 10518300 (Version 1)
Quarter: 2014Q4

REPORT INFORMATION
  Report Type: Report from Study
  Country: CA (occurrence: CA)
  Receive Date: 20141015
  Receipt Date: 20141015
  Transmission Date: 20150528
  Serious: Yes (Death, Hospitalization)
  Sender: FDA-Public Use
  Company Number: CA-JNJFOC-20141008633

PATIENT
  Age: 52 Year
  Sex: Female

DRUGS (2)
  1. ETHANOL [Concomitant]
     Active Substance: ALCOHOL
     Route: 065
  2. ACETAMINOPHEN. [Suspect]
     Active Substance: ACETAMINOPHEN
     Indication: PRODUCT USED FOR UNKNOWN INDICATION
     Route: 065
     Dates: start: 20081212, end: 20081226

REACTIONS (4)
  - Alcoholic liver disease [Unknown]
  - Overdose [Fatal]
  - Hepatic failure [Fatal]
  - Hepatic encephalopathy [Fatal]

NARRATIVE: CASE EVENT DATE: 200812
